FAERS Safety Report 11626403 (Version 1)
Quarter: 2015Q4

REPORT INFORMATION
  Report Type: Spontaneous
  Country: US (occurrence: US)
  Receive Date: 20151013
  Receipt Date: 20151013
  Transmission Date: 20160304
  Serious: No
  Sender: FDA-Public Use
  Company Number: US-ROCHE-1539173

PATIENT
  Age: 70 Year
  Sex: Male

DRUGS (6)
  1. ZELBORAF [Suspect]
     Active Substance: VEMURAFENIB
     Indication: MALIGNANT MELANOMA
     Route: 048
     Dates: start: 20150114, end: 20150206
  2. FLUX (FLUOXETINE) [Concomitant]
  3. DESOXIMETASONE. [Concomitant]
     Active Substance: DESOXIMETASONE
  4. ZETIA [Concomitant]
     Active Substance: EZETIMIBE
  5. CIPROFLOXACIN. [Concomitant]
     Active Substance: CIPROFLOXACIN
  6. BENAZEPRIL [Concomitant]
     Active Substance: BENAZEPRIL HYDROCHLORIDE

REACTIONS (3)
  - Liver function test abnormal [Recovered/Resolved]
  - Arthralgia [Unknown]
  - Rash [Unknown]

NARRATIVE: CASE EVENT DATE: 20150206
